FAERS Safety Report 15095220 (Version 2)
Quarter: 2019Q1

REPORT INFORMATION
  Report Type: Report from Study
  Country: None (occurrence: US)
  Receive Date: 20180702
  Receipt Date: 20190123
  Transmission Date: 20190417
  Serious: Yes (Other)
  Sender: FDA-Public Use
  Company Number: US-ABBVIE-17K-163-1992980-00

PATIENT
  Sex: Female

DRUGS (4)
  1. OTEZLA [Concomitant]
     Active Substance: APREMILAST
     Indication: PSORIASIS
     Dates: start: 201811
  2. HUMIRA [Suspect]
     Active Substance: ADALIMUMAB
     Indication: PSORIASIS
     Route: 058
     Dates: end: 2018
  3. HUMIRA [Suspect]
     Active Substance: ADALIMUMAB
     Route: 058
     Dates: start: 2018
  4. HUMIRA [Suspect]
     Active Substance: ADALIMUMAB
     Indication: CROHN^S DISEASE
     Route: 058
     Dates: start: 2014

REACTIONS (11)
  - Hernia [Unknown]
  - Eczema [Unknown]
  - Headache [Unknown]
  - Drug ineffective [Recovering/Resolving]
  - Frequent bowel movements [Unknown]
  - Psoriasis [Recovering/Resolving]
  - Alopecia [Recovering/Resolving]
  - Neuropathy peripheral [Not Recovered/Not Resolved]
  - Post procedural infection [Unknown]
  - Intestinal operation [Unknown]
  - Carpal tunnel syndrome [Unknown]

NARRATIVE: CASE EVENT DATE: 2015
